FAERS Safety Report 8639105 (Version 2)
Quarter: 2014Q3

REPORT INFORMATION
  Report Type: Spontaneous
  Country: US (occurrence: None)
  Receive Date: 20120614
  Receipt Date: 20140825
  Transmission Date: 20150326
  Serious: Yes (Hospitalization, Other)
  Sender: FDA-Public Use
  Company Number: ADR-2011-11005

PATIENT
  Age: 41 Year
  Sex: Female

DRUGS (4)
  1. FENTANYL. [Suspect]
     Active Substance: FENTANYL
  2. CLONIDINE. [Suspect]
     Active Substance: CLONIDINE
  3. COMPOUNDED BACLOFEN [Suspect]
     Active Substance: BACLOFEN
     Indication: MUSCLE SPASTICITY
     Dosage: 470.95 MCG, DAILY, INTR
  4. BUPIVACAINE [Suspect]
     Active Substance: BUPIVACAINE

REACTIONS (5)
  - Hypertension [None]
  - Device kink [None]
  - Drug withdrawal syndrome [None]
  - Tachycardia [None]
  - Withdrawal syndrome [None]

NARRATIVE: CASE EVENT DATE: 20110325
